FAERS Safety Report 10748274 (Version 7)
Quarter: 2015Q3

REPORT INFORMATION
  Report Type: Spontaneous
  Country: US (occurrence: US)
  Receive Date: 20150129
  Receipt Date: 20150921
  Transmission Date: 20151125
  Serious: Yes (Life-Threatening, Hospitalization, Other)
  Sender: FDA-Public Use
  Company Number: US-BAYER-2015-013073

PATIENT
  Age: 33 Year
  Sex: Female
  Weight: 66 kg

DRUGS (9)
  1. MIRENA [Suspect]
     Active Substance: LEVONORGESTREL
     Dosage: 20 MCG/24HR, CONT
     Route: 015
     Dates: start: 20080826, end: 20130326
  2. FLUCONAZOLE. [Concomitant]
     Active Substance: FLUCONAZOLE
     Dosage: 100 MG, 2 TABLETS FIRST DAY AND THEN 1 TABLET A DAY AFTER THAT FOR THE NEXT 14 DAYS.
     Dates: start: 20130220
  3. TYLENOL [Concomitant]
     Active Substance: ACETAMINOPHEN
     Dosage: 325 MG, UNK
  4. OXYCODONE/APAP [Concomitant]
     Active Substance: ACETAMINOPHEN\OXYCODONE HYDROCHLORIDE
     Dosage: 5-325
  5. DILAUDID [Concomitant]
     Active Substance: HYDROMORPHONE HYDROCHLORIDE
  6. IBUPROFEN. [Concomitant]
     Active Substance: IBUPROFEN
     Dosage: 600 MG, 1 TABLET EVERY 4 HOURS
     Dates: start: 20130220
  7. TORADOL [Concomitant]
     Active Substance: KETOROLAC TROMETHAMINE
  8. DIAZEPAM. [Concomitant]
     Active Substance: DIAZEPAM
     Dosage: 5 MG, TAKE 1 TABLET 3 TIMES DAILY
     Route: 048
  9. SPRINTEC [Concomitant]
     Active Substance: ETHINYL ESTRADIOL\NORGESTIMATE

REACTIONS (7)
  - Ectopic pregnancy with contraceptive device [None]
  - Drug ineffective [None]
  - Uterine perforation [None]
  - Abdominal pain [None]
  - General physical health deterioration [None]
  - Injury [None]
  - Infection [None]

NARRATIVE: CASE EVENT DATE: 20130220
